FAERS Safety Report 14936058 (Version 3)
Quarter: 2019Q2

REPORT INFORMATION
  Report Type: Spontaneous
  Country: CA (occurrence: CA)
  Receive Date: 20180524
  Receipt Date: 20190621
  Transmission Date: 20190711
  Serious: Yes (Other)
  Sender: FDA-Public Use
  Company Number: CA-BIOMARINAP-CA-2018-118383

PATIENT
  Age: 9 Year
  Sex: Female
  Weight: 23.3 kg

DRUGS (4)
  1. ADVIL [IBUPROFEN] [Concomitant]
     Active Substance: IBUPROFEN
     Indication: PYREXIA
  2. TYLENOL [Concomitant]
     Active Substance: ACETAMINOPHEN
     Indication: PYREXIA
  3. NAGLAZYME [Suspect]
     Active Substance: GALSULFASE
     Indication: MUCOPOLYSACCHARIDOSIS VI
     Dosage: 1 MG/KG, QW
     Route: 042
     Dates: start: 2012
  4. AERIUS (DESLORATADINE) [Concomitant]
     Active Substance: DESLORATADINE
     Indication: PREMEDICATION
     Dosage: 1.25 MG, SINGLE
     Route: 048

REACTIONS (2)
  - Spinal cord compression [Unknown]
  - Kyphosis [Not Recovered/Not Resolved]

NARRATIVE: CASE EVENT DATE: 20180430
